FAERS Safety Report 6287242-8 (Version None)
Quarter: 2009Q3

REPORT INFORMATION
  Report Type: 
  Country: None (occurrence: None)
  Receive Date: 20090728
  Receipt Date: 20090715
  Transmission Date: 20100115
  Serious: Yes (Hospitalization, Other)
  Sender: FDA-Public Use
  Company Number: PHHY2009JP19725

PATIENT
  Sex: Male
  Weight: 50 kg

DRUGS (4)
  1. DIOVAN HCT [Suspect]
     Indication: HYPERTENSION
     Dosage: 1 (80/12.5 MG) DF, QD
     Route: 048
     Dates: start: 20090428, end: 20090518
  2. MEXITIL [Concomitant]
     Indication: VENTRICULAR EXTRASYSTOLES
     Dosage: 200 MG, UNK
     Dates: start: 20090417
  3. NU-LOTAN [Concomitant]
     Indication: HYPERTENSION
     Dosage: 50 MG, UNK
     Dates: start: 20090520
  4. ASPIRIN [Concomitant]
     Dosage: 100 MG, UNK
     Dates: start: 20090520

REACTIONS (11)
  - BLOOD PRESSURE DECREASED [None]
  - BLOOD PRESSURE INADEQUATELY CONTROLLED [None]
  - CEREBRAL ISCHAEMIA [None]
  - CHEST DISCOMFORT [None]
  - DEPRESSED LEVEL OF CONSCIOUSNESS [None]
  - DYSARTHRIA [None]
  - HEART RATE DECREASED [None]
  - HEART RATE IRREGULAR [None]
  - SYNCOPE [None]
  - TRANSIENT ISCHAEMIC ATTACK [None]
  - VENTRICULAR EXTRASYSTOLES [None]
